FAERS Safety Report 8383566-9 (Version None)
Quarter: 2012Q2

REPORT INFORMATION
  Report Type: 
  Country: None (occurrence: None)
  Receive Date: 20120524
  Receipt Date: 20120515
  Transmission Date: 20120825
  Serious: Yes (Hospitalization)
  Sender: FDA-Public Use
  Company Number: ES-BAYER-2012-046579

PATIENT
  Age: 86 Year
  Sex: Male

DRUGS (6)
  1. ATORVASTATIN CALCIUM [Concomitant]
     Route: 048
  2. ASPIRIN [Suspect]
     Dosage: 300 MG, QD
     Route: 048
     Dates: start: 20110701, end: 20110722
  3. OMEPRAZOLE [Concomitant]
     Dosage: 20 MG, QD
     Route: 048
  4. INDAPAMIDE [Concomitant]
     Dosage: 1.5 MG, QD
     Route: 048
  5. ZYPREXA [Concomitant]
     Dosage: 2.5 MG, QD
     Route: 048
  6. PLENDIL [Concomitant]
     Dosage: 5 MG, QD
     Route: 048

REACTIONS (1)
  - HAEMATURIA [None]
